FAERS Safety Report 22105978 (Version 1)
Quarter: 2023Q1

REPORT INFORMATION
  Report Type: Spontaneous
  Country: US (occurrence: US)
  Receive Date: 20230317
  Receipt Date: 20230317
  Transmission Date: 20230417
  Serious: No
  Sender: FDA-Public Use
  Company Number: US-SANOFI-01526009

PATIENT
  Age: 56 Year
  Sex: Female

DRUGS (1)
  1. DUPIXENT [Suspect]
     Active Substance: DUPILUMAB
     Indication: Mastocytic enterocolitis
     Dosage: UNK UNK, 1X
     Dates: start: 20230307, end: 20230307

REACTIONS (1)
  - Product use in unapproved indication [Unknown]

NARRATIVE: CASE EVENT DATE: 20230307
